FAERS Safety Report 5688143-6 (Version None)
Quarter: 2008Q1

REPORT INFORMATION
  Report Type: 
  Country: None (occurrence: None)
  Receive Date: 20080327
  Receipt Date: 20080314
  Transmission Date: 20080703
  Serious: Yes (Hospitalization, Other)
  Sender: FDA-Public Use
  Company Number: 2008EU000545

PATIENT
  Age: 83 Year
  Sex: Male

DRUGS (2)
  1. SOLIFENACIN(SOLIFENACIN) TABLET, UNKNOWN [Suspect]
     Indication: POLLAKIURIA
     Dosage: 5 MG, D, ORAL
     Route: 048
     Dates: start: 20071101, end: 20071228
  2. FLOXACILLIN SODIUM [Suspect]
     Indication: INFECTION
     Dosage: 200 MG, QID, ORAL
     Route: 048
     Dates: start: 20071101, end: 20071108

REACTIONS (1)
  - DELIRIUM [None]
